FAERS Safety Report 20350690 (Version 1)
Quarter: 2022Q1

REPORT INFORMATION
  Report Type: Spontaneous
  Country: US (occurrence: None)
  Receive Date: 20220117
  Receipt Date: 20220117
  Transmission Date: 20220423
  Serious: Yes (Other)
  Sender: FDA-Public Use
  Company Number: None

PATIENT
  Age: 41 Year
  Sex: Female
  Weight: 51.75 kg

DRUGS (1)
  1. NORETHINDRONE AND ETHINYL ESTRADIOL, AND FERROUS FUMARATE [Suspect]
     Active Substance: ETHINYL ESTRADIOL\NORETHINDRONE
     Indication: Contraception
     Dosage: FREQUENCY : DAILY;?
     Route: 048
     Dates: start: 20120101, end: 20170101

REACTIONS (4)
  - Fibroadenoma of breast [None]
  - Heavy menstrual bleeding [None]
  - Dysmenorrhoea [None]
  - Product substitution issue [None]

NARRATIVE: CASE EVENT DATE: 20170101
